FAERS Safety Report 6414759-5 (Version None)
Quarter: 2009Q4

REPORT INFORMATION
  Report Type: 
  Country: None (occurrence: None)
  Receive Date: 20091026
  Receipt Date: 20091026
  Transmission Date: 20100525
  Serious: Yes (Hospitalization)
  Sender: FDA-Public Use
  Company Number: None

PATIENT
  Age: 49 Year
  Sex: Female
  Weight: 77.5651 kg

DRUGS (2)
  1. MAXALT [Suspect]
     Indication: MIGRAINE
     Dosage: 5 MG ONCE PO
     Route: 048
     Dates: start: 20090507
  2. DEPAKOTE [Suspect]
     Indication: CONVULSION
     Dosage: 250 MG ONCE PO
     Route: 048
     Dates: start: 20090706

REACTIONS (7)
  - AMNESIA [None]
  - BODY TEMPERATURE DECREASED [None]
  - HEADACHE [None]
  - IMPAIRED DRIVING ABILITY [None]
  - SPEECH DISORDER [None]
  - THINKING ABNORMAL [None]
  - TREMOR [None]
